FAERS Safety Report 4374113-7 (Version None)
Quarter: 2004Q2

REPORT INFORMATION
  Report Type: 
  Country: None (occurrence: None)
  Receive Date: 20040607
  Receipt Date: 20040427
  Transmission Date: 20050107
  Serious: Yes (Hospitalization, Other)
  Sender: FDA-Public Use
  Company Number: GB-MERCK-0404GBR00212

PATIENT
  Age: 68 Year
  Sex: Female
  Weight: 65 kg

DRUGS (1)
  1. FOSAMAX [Suspect]
     Indication: OSTEOPOROSIS POSTMENOPAUSAL
     Route: 048
     Dates: start: 20031201

REACTIONS (7)
  - COUGH [None]
  - DYSPNOEA [None]
  - FOREIGN BODY TRAUMA [None]
  - LARYNGEAL ULCERATION [None]
  - LARYNGITIS [None]
  - ODYNOPHAGIA [None]
  - THROAT IRRITATION [None]
